FAERS Safety Report 7104842-3 (Version None)
Quarter: 2010Q4

REPORT INFORMATION
  Report Type: 
  Country: None (occurrence: None)
  Receive Date: 20101109
  Receipt Date: 20101029
  Transmission Date: 20110411
  Serious: Yes (Hospitalization, Disabling, Other)
  Sender: FDA-Public Use
  Company Number: 2010JP005304

PATIENT
  Age: 44 Year
  Sex: Male

DRUGS (32)
  1. TACROLIMUS [Suspect]
     Indication: PANCREAS TRANSPLANT
     Dosage: 4 MG, BID ORAL
     Route: 048
     Dates: start: 20060329, end: 20060424
  2. CELLCEPT [Suspect]
     Indication: PANCREAS TRANSPLANT
     Dosage: 1000 MG, UID/QD, ORAL
     Route: 048
     Dates: start: 20060325, end: 20060325
  3. METHYLPREDNISOLONE [Concomitant]
  4. SIMULECT [Concomitant]
  5. NOVOLOG [Concomitant]
  6. HUMULIN R [Concomitant]
  7. FLUMARIN (MORNIFLUMATE) [Concomitant]
  8. RABEPRAZOLE SODIUM [Concomitant]
  9. LEVOTHYROXINE SODIUM [Concomitant]
  10. ACTOS [Concomitant]
  11. CARVEDILOL [Concomitant]
  12. FOIPAN (CAMOSTAT MESILATE) [Concomitant]
  13. NORVASC [Concomitant]
  14. TICLOPIDINE HCL [Concomitant]
  15. FOY (GABEXATE MESILATE) [Concomitant]
  16. GANICLOVIR) [Concomitant]
  17. GANCICLOVIR SODIUM [Concomitant]
  18. ALLOPURINOL [Concomitant]
  19. LOSARTAN POTASSIUM [Concomitant]
  20. HANGE-SHASHIN-TO PER ORAL NOS [Concomitant]
  21. LOPERAMIDE HCL [Concomitant]
  22. FERROMIA (FERRIC SODIUM CITRATE) [Concomitant]
  23. PURSENNID (SENNOSIDE A+B) [Concomitant]
  24. XALATAN [Concomitant]
  25. TRUSOPT [Concomitant]
  26. TIMOPTOL-XE (TIMOLOL MALEATE) [Concomitant]
  27. SANPILO (PILOCARPINE HYDROCHLORIDE) [Concomitant]
  28. GASCON (DIMETICONE) [Concomitant]
  29. ISODINE (POVIDONE-IODINE) [Concomitant]
  30. CEFMETAZOLE [Concomitant]
  31. FLOMOXEF [Concomitant]
  32. REMINARON (GABEXATE MESILATE) [Concomitant]

REACTIONS (8)
  - AUTOIMMUNE PANCREATITIS [None]
  - COMPLICATIONS OF TRANSPLANT SURGERY [None]
  - CYTOMEGALOVIRUS TEST POSITIVE [None]
  - DIARRHOEA [None]
  - ERYTHEMA [None]
  - FOLLICULITIS [None]
  - INCISIONAL HERNIA [None]
  - PANCREATITIS [None]
